FAERS Safety Report 8197104-7 (Version None)
Quarter: 2012Q1

REPORT INFORMATION
  Report Type: 
  Country: None (occurrence: None)
  Receive Date: 20120307
  Receipt Date: 20120222
  Transmission Date: 20120608
  Serious: Yes (Other)
  Sender: FDA-Public Use
  Company Number: 2012P1004452

PATIENT
  Sex: Male

DRUGS (4)
  1. FENTANYL-75 [Suspect]
     Indication: PAIN
     Dosage: 1 PATCH;QOD;TDER
     Route: 062
     Dates: start: 20080101, end: 20120201
  2. FENTANYL [Suspect]
     Indication: PAIN
     Dosage: 1 PATCH;QOD
     Dates: start: 20080101, end: 20120205
  3. FENTANYL [Suspect]
     Indication: PAIN
     Dosage: 1 PATCH;QOD
     Dates: start: 20120202, end: 20120205
  4. PERCOCET [Concomitant]

REACTIONS (16)
  - ABNORMAL DREAMS [None]
  - POOR QUALITY SLEEP [None]
  - POISONING [None]
  - HIP ARTHROPLASTY [None]
  - RESTLESS LEGS SYNDROME [None]
  - IMPRISONMENT [None]
  - ARTHRITIS [None]
  - INSOMNIA [None]
  - DRUG INEFFECTIVE [None]
  - HALLUCINATION, VISUAL [None]
  - GAIT DISTURBANCE [None]
  - VOMITING [None]
  - DISCOMFORT [None]
  - PROCEDURAL PAIN [None]
  - ABASIA [None]
  - DRUG WITHDRAWAL SYNDROME [None]
